FAERS Safety Report 5608546-5 (Version None)
Quarter: 2008Q1

REPORT INFORMATION
  Report Type: 
  Country: None (occurrence: None)
  Receive Date: 20080130
  Receipt Date: 20080118
  Transmission Date: 20080703
  Serious: Yes (Other)
  Sender: FDA-Public Use
  Company Number: DE-PFIZER INC-2008006065

PATIENT
  Age: 74 Year
  Sex: Female
  Weight: 66 kg

DRUGS (3)
  1. LYRICA [Suspect]
     Indication: ANXIETY DISORDER
     Dosage: DAILY DOSE:75MG
     Route: 048
  2. CIPRALEX [Concomitant]
     Route: 048
  3. TAVOR [Concomitant]
     Route: 048

REACTIONS (1)
  - TYPE 2 DIABETES MELLITUS [None]
